FAERS Safety Report 15059275 (Version 1)
Quarter: 2018Q2

REPORT INFORMATION
  Report Type: Spontaneous
  Country: US (occurrence: US)
  Receive Date: 20180625
  Receipt Date: 20180625
  Transmission Date: 20180711
  Serious: No
  Sender: FDA-Public Use
  Company Number: US-MYLANLABS-2018M1038796

PATIENT
  Age: 69 Year
  Sex: Female

DRUGS (1)
  1. ALPRAZOLAM TABLETS, USP [Suspect]
     Active Substance: ALPRAZOLAM
     Indication: ANXIETY DISORDER
     Dosage: 1 MG, UNK
     Route: 048

REACTIONS (6)
  - Product packaging issue [Unknown]
  - Inappropriate schedule of drug administration [Unknown]
  - Drug ineffective [Not Recovered/Not Resolved]
  - Expired product administered [Not Recovered/Not Resolved]
  - Dysgeusia [Not Recovered/Not Resolved]
  - Intentional product misuse [Not Recovered/Not Resolved]
